FAERS Safety Report 10412574 (Version 1)
Quarter: 2014Q2

REPORT INFORMATION
  Report Type: Spontaneous
  Country: US (occurrence: None)
  Receive Date: 20140604
  Receipt Date: 20140604
  Transmission Date: 20141212
  Serious: Yes (Hospitalization)
  Sender: FDA-Public Use
  Company Number: 163-POMAL-14022875

PATIENT
  Age: 65 Year
  Sex: Male
  Weight: 117 kg

DRUGS (4)
  1. POMALYST (POMALIDOMIDE) (1 MILLIGRAM, CAPSULES) [Suspect]
     Indication: PLASMA CELL MYELOMA
     Dosage: 21 IN 28D
     Route: 048
     Dates: start: 20130904, end: 201310
  2. COUMADIN (WARFARIN SODIUM) [Concomitant]
  3. DECADRON (DEXAMETHASONE) [Concomitant]
  4. MAGNESIUM OXIDE (MAGNESIUM OXIDE) [Concomitant]

REACTIONS (3)
  - Pneumonia [None]
  - Drug dose omission [None]
  - No adverse event [None]
